FAERS Safety Report 7768973-7 (Version None)
Quarter: 2011Q3

REPORT INFORMATION
  Report Type: 
  Country: None (occurrence: None)
  Receive Date: 20110922
  Receipt Date: 20101207
  Transmission Date: 20111222
  Serious: No
  Sender: FDA-Public Use
  Company Number: US-ASTRAZENECA-2010SE57991

PATIENT
  Sex: Female

DRUGS (3)
  1. SEROQUEL [Suspect]
     Indication: BIPOLAR DISORDER
     Dosage: TOTAL DAILY DOSAGE: 100-200 MILLIGRAMS AT NIGHT.
     Route: 048
  2. SEROQUEL [Suspect]
     Indication: SLEEP DISORDER
     Dosage: TOTAL DAILY DOSAGE: 100-200 MILLIGRAMS AT NIGHT.
     Route: 048
  3. UNSPECIFIED MEDICATIONS [Concomitant]

REACTIONS (1)
  - UPPER RESPIRATORY TRACT IRRITATION [None]
